FAERS Safety Report 15947633 (Version 2)
Quarter: 2022Q4

REPORT INFORMATION
  Report Type: Spontaneous
  Country: FR (occurrence: FR)
  Receive Date: 20190212
  Receipt Date: 20221019
  Transmission Date: 20230113
  Serious: Yes (Hospitalization, Other)
  Sender: FDA-Public Use
  Company Number: FR-AUROBINDO-AUR-APL-2019-007340

PATIENT
  Age: 42 Year
  Sex: Female
  Weight: 75 kg

DRUGS (7)
  1. VALACYCLOVIR HYDROCHLORIDE [Suspect]
     Active Substance: VALACYCLOVIR HYDROCHLORIDE
     Indication: Antiviral prophylaxis
     Dosage: 2000 MILLIGRAM, ONCE A DAY (1000 MG, BID )
     Route: 048
     Dates: start: 20171220, end: 20180830
  2. AVADOMIDE [Suspect]
     Active Substance: AVADOMIDE
     Indication: B-cell lymphoma
     Dosage: 3 MILLIGRAM
     Route: 048
     Dates: start: 20171220
  3. BACTRIM [Suspect]
     Active Substance: SULFAMETHOXAZOLE\TRIMETHOPRIM
     Indication: Infection prophylaxis
     Dosage: 1 DOSAGE FORM, Z
     Route: 048
     Dates: start: 20171222, end: 20180830
  4. OBINUTUZUMAB [Suspect]
     Active Substance: OBINUTUZUMAB
     Indication: Follicular lymphoma
     Dosage: 1000 MILLIGRAM
     Route: 042
     Dates: start: 20171221
  5. AVADOMIDE [Suspect]
     Active Substance: AVADOMIDE
     Indication: B-cell lymphoma
     Dosage: 3 MILLIGRAM
     Route: 065
     Dates: start: 20171220
  6. CALCIUM CARBONATE\CHOLECALCIFEROL [Concomitant]
     Active Substance: CALCIUM CARBONATE\CHOLECALCIFEROL
     Indication: Vitamin supplementation
     Dosage: 1 DOSAGE FORM, ONCE A DAY
     Route: 048
     Dates: start: 20180131
  7. IXPRIM [Concomitant]
     Active Substance: ACETAMINOPHEN\TRAMADOL HYDROCHLORIDE
     Indication: Fibromyalgia
     Dosage: 1 DOSAGE FORM, AS NECESSARY (37.5/325 MG)CYCLICAL
     Route: 048

REACTIONS (2)
  - Pyrexia [Recovered/Resolved]
  - Hepatic cytolysis [Recovered/Resolved]

NARRATIVE: CASE EVENT DATE: 20180830
